FAERS Safety Report 24583292 (Version 1)
Quarter: 2024Q4

REPORT INFORMATION
  Report Type: Report from Study
  Country: CZ (occurrence: CZ)
  Receive Date: 20241106
  Receipt Date: 20241106
  Transmission Date: 20250115
  Serious: Yes (Other)
  Sender: ABBVIE
  Company Number: CZ-ABBVIE-5986929

PATIENT
  Age: 31 Year
  Sex: Female

DRUGS (4)
  1. SKYRIZI [Suspect]
     Active Substance: RISANKIZUMAB-RZAA
     Indication: Psoriasis
     Dosage: 150 MG IN WEEK 0 AND 4, THEN EVERY 12 WEEKS
     Route: 058
     Dates: start: 20221205
  2. BRIVIACT [Concomitant]
     Active Substance: BRIVARACETAM
     Indication: Product used for unknown indication
  3. SERTRALINE HYDROCHLORIDE [Concomitant]
     Active Substance: SERTRALINE HYDROCHLORIDE
     Indication: Product used for unknown indication
  4. RIVOTRIL [Concomitant]
     Active Substance: CLONAZEPAM
     Indication: Product used for unknown indication

REACTIONS (8)
  - Astrocytoma, low grade [Unknown]
  - Astrocytoma, low grade [Unknown]
  - Pancytopenia [Unknown]
  - Radiotherapy to brain [Unknown]
  - Astrocytoma, low grade [Unknown]
  - Thrombocytopenia [Unknown]
  - Staphylococcal infection [Unknown]
  - Bacteriuria [Unknown]

NARRATIVE: CASE EVENT DATE: 20230831
